FAERS Safety Report 10234052 (Version 6)
Quarter: 2015Q1

REPORT INFORMATION
  Report Type: Spontaneous
  Country: US (occurrence: US)
  Receive Date: 20140612
  Receipt Date: 20150319
  Transmission Date: 20150720
  Serious: Yes (Death, Hospitalization, Other)
  Sender: FDA-Public Use
  Company Number: US-009507513-1406USA004975

PATIENT
  Sex: Male
  Weight: 113.83 kg

DRUGS (3)
  1. PROSCAR [Suspect]
     Active Substance: FINASTERIDE
     Indication: PROSTATOMEGALY
     Dosage: 5 MG, QD
     Route: 048
     Dates: start: 200307, end: 201204
  2. FINASTERIDE. [Suspect]
     Active Substance: FINASTERIDE
     Dosage: 5 MG, UNK
     Route: 048
     Dates: start: 20080106, end: 20120222
  3. PROSCAR [Suspect]
     Active Substance: FINASTERIDE
     Dosage: 5 MG, QD
     Route: 048

REACTIONS (29)
  - Disturbance in attention [Not Recovered/Not Resolved]
  - Hypogonadism [Unknown]
  - Breast enlargement [Not Recovered/Not Resolved]
  - Penile size reduced [Unknown]
  - Depression [Not Recovered/Not Resolved]
  - Metastases to central nervous system [Unknown]
  - Balanoposthitis [Unknown]
  - Hypertonic bladder [Unknown]
  - Erectile dysfunction [Not Recovered/Not Resolved]
  - Cancer surgery [Unknown]
  - Libido decreased [Unknown]
  - Erectile dysfunction [Unknown]
  - Dysuria [Unknown]
  - Hypercholesterolaemia [Unknown]
  - HIV test positive [Unknown]
  - Death [Fatal]
  - Cerebral haemorrhage [Unknown]
  - Atrial fibrillation [Unknown]
  - Semen volume decreased [Unknown]
  - Sexual dysfunction [Not Recovered/Not Resolved]
  - Road traffic accident [Unknown]
  - Gastrointestinal bacterial infection [Unknown]
  - Cardiovascular disorder [Unknown]
  - HIV infection [Unknown]
  - Bladder outlet obstruction [Unknown]
  - Dizziness [Unknown]
  - Anxiety [Not Recovered/Not Resolved]
  - Spermatocele [Unknown]
  - Gastrooesophageal reflux disease [Unknown]

NARRATIVE: CASE EVENT DATE: 2001
